FAERS Safety Report 24868602 (Version 1)
Quarter: 2025Q1

REPORT INFORMATION
  Report Type: Report from Study
  Country: FR (occurrence: FR)
  Receive Date: 20250121
  Receipt Date: 20250121
  Transmission Date: 20250409
  Serious: Yes (Death, Hospitalization)
  Sender: MYLAN
  Company Number: FR-MYLANLABS-2025M1005188

PATIENT
  Age: 54 Year
  Sex: Male

DRUGS (7)
  1. CISPLATIN [Suspect]
     Active Substance: CISPLATIN
     Indication: Adenocarcinoma gastric
     Route: 065
  2. FLUOROURACIL [Suspect]
     Active Substance: FLUOROURACIL
     Indication: Adenocarcinoma gastric
     Route: 065
  3. DOCETAXEL [Suspect]
     Active Substance: DOCETAXEL
     Indication: Adenocarcinoma gastric
     Route: 065
  4. TINZAPARIN [Concomitant]
     Active Substance: TINZAPARIN
     Indication: Pulmonary embolism
     Dosage: 175 INTERNATIONAL UNIT/KILOGRAM, QD
     Route: 058
  5. TINZAPARIN [Concomitant]
     Active Substance: TINZAPARIN
     Route: 058
  6. TINZAPARIN [Concomitant]
     Active Substance: TINZAPARIN
     Dosage: 175 INTERNATIONAL UNIT/KILOGRAM, QD
     Route: 058
  7. TINZAPARIN [Concomitant]
     Active Substance: TINZAPARIN
     Route: 058

REACTIONS (1)
  - Treatment failure [Fatal]
